FAERS Safety Report 17101656 (Version 1)
Quarter: 2019Q4

REPORT INFORMATION
  Report Type: Report from Study
  Country: CA (occurrence: CA)
  Receive Date: 20191202
  Receipt Date: 20191202
  Transmission Date: 20200122
  Serious: Yes (Other)
  Sender: FDA-Public Use
  Company Number: NVSC2019CA050923

PATIENT
  Age: 58 Year
  Sex: Female

DRUGS (4)
  1. LODIPINE [Concomitant]
     Indication: PRODUCT USED FOR UNKNOWN INDICATION
     Route: 048
  2. HUMIRA [Concomitant]
     Active Substance: ADALIMUMAB
     Indication: PRODUCT USED FOR UNKNOWN INDICATION
     Route: 058
  3. METHOTREXATE. [Concomitant]
     Active Substance: METHOTREXATE
     Indication: PRODUCT USED FOR UNKNOWN INDICATION
     Route: 048
  4. PANTOPRAZOLE [Suspect]
     Active Substance: PANTOPRAZOLE
     Indication: PRODUCT USED FOR UNKNOWN INDICATION
     Route: 048

REACTIONS (11)
  - Arthralgia [Unknown]
  - General physical health deterioration [Unknown]
  - Ankylosing spondylitis [Unknown]
  - Dysstasia [Unknown]
  - Fatigue [Unknown]
  - Joint swelling [Unknown]
  - Musculoskeletal stiffness [Unknown]
  - Pain [Unknown]
  - Gait disturbance [Unknown]
  - Mobility decreased [Unknown]
  - Discomfort [Unknown]

NARRATIVE: CASE EVENT DATE: 201911
